FAERS Safety Report 18398207 (Version 1)
Quarter: 2020Q4

REPORT INFORMATION
  Report Type: Spontaneous
  Country: US (occurrence: US)
  Receive Date: 20201019
  Receipt Date: 20201019
  Transmission Date: 20210114
  Serious: No
  Sender: FDA-Public Use
  Company Number: None

PATIENT
  Age: 78 Year
  Sex: Male
  Weight: 72.12 kg

DRUGS (1)
  1. SUCRALFATE (SUCRALFATE 1GM TAB) [Suspect]
     Active Substance: SUCRALFATE
     Indication: GASTROOESOPHAGEAL REFLUX DISEASE
     Route: 048
     Dates: start: 20191213, end: 20200717

REACTIONS (2)
  - Aphonia [None]
  - Oropharyngeal pain [None]

NARRATIVE: CASE EVENT DATE: 20200717
